FAERS Safety Report 12532357 (Version 1)
Quarter: 2016Q3

REPORT INFORMATION
  Report Type: Spontaneous
  Country: US (occurrence: US)
  Receive Date: 20160706
  Receipt Date: 20160706
  Transmission Date: 20161109
  Serious: Yes (Other)
  Sender: FDA-Public Use
  Company Number: US-CELGENEUS-USA-2016066789

PATIENT
  Age: 67 Year
  Sex: Female
  Weight: 73.55 kg

DRUGS (15)
  1. DEXAMETHASONE. [Concomitant]
     Active Substance: DEXAMETHASONE
     Indication: PRODUCT USED FOR UNKNOWN INDICATION
     Route: 065
     Dates: start: 20151230
  2. ASPIRIN LOW DOSE [Concomitant]
     Active Substance: ASPIRIN
     Indication: PROPHYLAXIS
     Route: 048
     Dates: start: 20151230
  3. CALCIUM 600 + D [Concomitant]
     Active Substance: CALCIUM\VITAMIN D
     Indication: VITAMIN D DEFICIENCY
     Dosage: 600-200 MG-UNIT
     Route: 065
     Dates: start: 20151230
  4. CYCLOPHOSPHAMIDE. [Concomitant]
     Active Substance: CYCLOPHOSPHAMIDE
     Indication: PLASMA CELL MYELOMA
     Route: 048
     Dates: start: 20151230
  5. POMALYST [Suspect]
     Active Substance: POMALIDOMIDE
     Indication: PLASMA CELL MYELOMA
     Dosage: 4 MILLIGRAM
     Route: 048
     Dates: start: 20160511
  6. AMLODIPINE BESYLATE-BENAZEPRIL HCL [Concomitant]
     Indication: HYPERTENSION
     Dosage: 5-10 MG
     Route: 048
     Dates: start: 20151230
  7. VELCADE [Concomitant]
     Active Substance: BORTEZOMIB
     Indication: PLASMA CELL MYELOMA
     Dosage: 50 MILLIGRAM
     Route: 065
     Dates: start: 20151230
  8. NEXIUM [Concomitant]
     Active Substance: ESOMEPRAZOLE MAGNESIUM
     Indication: GASTROOESOPHAGEAL REFLUX DISEASE
     Dosage: 6.25 MILLIGRAM
     Route: 048
     Dates: start: 20151230
  9. MOBIC [Concomitant]
     Active Substance: MELOXICAM
     Indication: PAIN
     Route: 048
     Dates: start: 20151230
  10. CARVEDILOL. [Concomitant]
     Active Substance: CARVEDILOL
     Indication: HYPERTENSION
     Route: 065
     Dates: start: 20151230
  11. CILOSTAZOL. [Concomitant]
     Active Substance: CILOSTAZOL
     Indication: PERIPHERAL VASCULAR DISORDER
     Route: 048
     Dates: start: 20151230
  12. LOSARTAN POTASSIUM. [Concomitant]
     Active Substance: LOSARTAN POTASSIUM
     Indication: HYPERTENSION
     Dosage: 81 MILLIGRAM
     Route: 048
     Dates: start: 20151230
  13. VITAMIN B12 [Concomitant]
     Active Substance: CYANOCOBALAMIN
     Indication: VITAMIN B COMPLEX DEFICIENCY
     Dosage: 50 MILLIGRAM
     Route: 048
     Dates: start: 20151230
  14. ZOFRAN [Concomitant]
     Active Substance: ONDANSETRON HYDROCHLORIDE
     Indication: NAUSEA
     Dosage: 40 MILLIGRAM
     Route: 048
     Dates: start: 20151230
  15. ZOFRAN [Concomitant]
     Active Substance: ONDANSETRON HYDROCHLORIDE
     Indication: VOMITING

REACTIONS (2)
  - Fatigue [Unknown]
  - Asthenia [Unknown]

NARRATIVE: CASE EVENT DATE: 20160622
